FAERS Safety Report 8109544-2 (Version None)
Quarter: 2012Q1

REPORT INFORMATION
  Report Type: 
  Country: None (occurrence: None)
  Receive Date: 20120202
  Receipt Date: 20120116
  Transmission Date: 20120608
  Serious: No
  Sender: FDA-Public Use
  Company Number: US-AMGEN-USASP2011048394

PATIENT
  Age: 79 Year
  Sex: Female

DRUGS (1)
  1. ENBREL [Suspect]
     Indication: RHEUMATOID ARTHRITIS
     Dosage: 50 MG, QWK
     Dates: start: 20110801, end: 20111001

REACTIONS (20)
  - FATIGUE [None]
  - PAIN [None]
  - EATING DISORDER [None]
  - ASTHENIA [None]
  - INFECTION [None]
  - ARTHRALGIA [None]
  - VAGINAL ODOUR [None]
  - BACK PAIN [None]
  - NAUSEA [None]
  - GAIT DISTURBANCE [None]
  - VAGINAL DISCHARGE [None]
  - INJECTION SITE PAIN [None]
  - LACERATION [None]
  - SOMNOLENCE [None]
  - PAIN IN EXTREMITY [None]
  - MALAISE [None]
  - SYNOVIAL CYST [None]
  - DYSURIA [None]
  - INJECTION SITE HAEMATOMA [None]
  - DRUG INEFFECTIVE [None]
